FAERS Safety Report 10125465 (Version 1)
Quarter: 2014Q2

REPORT INFORMATION
  Report Type: Spontaneous
  Country: US (occurrence: US)
  Receive Date: 20140425
  Receipt Date: 20140425
  Transmission Date: 20141212
  Serious: No
  Sender: FDA-Public Use
  Company Number: US-009507513-1403USA011051

PATIENT
  Age: 13 Year
  Sex: Male

DRUGS (2)
  1. CLARITIN REDITABS 12HR [Suspect]
     Indication: SEASONAL ALLERGY
     Dosage: 5 MG, Q12H
     Route: 048
  2. CLARITIN REDITABS 12HR [Suspect]
     Dosage: 15 MG, UNKNOWN
     Route: 048
     Dates: start: 20140314, end: 20140314

REACTIONS (1)
  - Overdose [Unknown]
